FAERS Safety Report 23360199 (Version 2)
Quarter: 2024Q1

REPORT INFORMATION
  Report Type: Other
  Country: US (occurrence: None)
  Receive Date: 20240103
  Receipt Date: 20240105
  Transmission Date: 20240409
  Serious: Yes (Life-Threatening, Other)
  Sender: FDA-Public Use
  Company Number: US-ROCHE-2754162

PATIENT
  Age: 66 Year
  Sex: Female
  Weight: 52.21 kg

DRUGS (14)
  1. OCREVUS [Suspect]
     Active Substance: OCRELIZUMAB
     Indication: Relapsing multiple sclerosis
     Dosage: THEN 600 MG EVERY 6 MONTH, DATE OF TREATMENT: 07/MAY/2018, 22/OCT/2018, 17/JUN/2020, 16/DEC/2020, 16
     Route: 042
     Dates: start: 20180423
  2. ASPIRIN [Concomitant]
     Active Substance: ASPIRIN
  3. LIPITOR [Concomitant]
     Active Substance: ATORVASTATIN CALCIUM
  4. SYMBICORT [Concomitant]
     Active Substance: BUDESONIDE\FORMOTEROL FUMARATE DIHYDRATE
  5. TEGRETOL [Concomitant]
     Active Substance: CARBAMAZEPINE
  6. VITAMIN D3 [Concomitant]
     Active Substance: CHOLECALCIFEROL
  7. NEURONTIN [Concomitant]
     Active Substance: GABAPENTIN
  8. ADVIL [Concomitant]
     Active Substance: IBUPROFEN
  9. AMBIEN [Concomitant]
     Active Substance: ZOLPIDEM TARTRATE
  10. VITAMIN B12 [Concomitant]
     Active Substance: CYANOCOBALAMIN
  11. ATORVASTATIN [Concomitant]
     Active Substance: ATORVASTATIN
  12. ALBUTEROL [Concomitant]
     Active Substance: ALBUTEROL
  13. ANTIVERT [Concomitant]
     Active Substance: MECLIZINE HYDROCHLORIDE
  14. DELTASONE [Concomitant]
     Active Substance: PREDNISONE

REACTIONS (10)
  - Cerebrovascular accident [Unknown]
  - Herpes zoster [Not Recovered/Not Resolved]
  - Hypertension [Unknown]
  - Rhinorrhoea [Unknown]
  - Back pain [Unknown]
  - Sneezing [Unknown]
  - Balance disorder [Unknown]
  - Pain [Unknown]
  - Back pain [Unknown]
  - Gait disturbance [Unknown]

NARRATIVE: CASE EVENT DATE: 20200101
